FAERS Safety Report 7798047 (Version 7)
Quarter: 2014Q3

REPORT INFORMATION
  Report Type: Report from Study
  Country: JP (occurrence: JP)
  Receive Date: 20110203
  Receipt Date: 20140909
  Transmission Date: 20150326
  Serious: Yes (Life-Threatening, Hospitalization)
  Sender: FDA-Public Use
  Company Number: JP-B.I. PHARMACEUTICALS,INC./RIDGEFIELD-2011-DE-00744GD

PATIENT
  Age: 64 Year
  Sex: Male
  Weight: 57 kg

DRUGS (12)
  1. MUCOSTA [Concomitant]
     Active Substance: REBAMIPIDE
     Dosage: 100 MG
     Route: 065
  2. SOSEGON [Concomitant]
     Active Substance: PENTAZOCINE
     Route: 065
     Dates: start: 20071221, end: 20071221
  3. DEPAS [Concomitant]
     Active Substance: ETIZOLAM
     Dosage: 1DF
     Route: 065
  4. HALCION [Concomitant]
     Active Substance: TRIAZOLAM
     Dosage: 0.5 MG
     Route: 065
  5. NELBIS [Concomitant]
     Active Substance: METFORMIN HYDROCHLORIDE
     Dosage: 500 MG
     Route: 065
  6. BAYASPIRIN [Suspect]
     Active Substance: ASPIRIN
     Indication: ISCHAEMIC HEART DISEASE PROPHYLAXIS
     Dosage: 100 MG
     Route: 065
  7. MOBIC [Suspect]
     Active Substance: MELOXICAM
     Indication: OSTEOARTHROPATHY
  8. RENIVACE [Concomitant]
     Active Substance: ENALAPRIL
     Dosage: 10 MG
     Route: 065
  9. HARNAL [Concomitant]
     Active Substance: TAMSULOSIN HYDROCHLORIDE
     Dosage: 0.2 MG
     Route: 065
  10. DORMICUM [Concomitant]
     Active Substance: MIDAZOLAM\MIDAZOLAM HYDROCHLORIDE
     Route: 065
     Dates: start: 20071221, end: 20071221
  11. MOBIC [Suspect]
     Active Substance: MELOXICAM
     Indication: ARTHRALGIA
     Dosage: 10 MG
     Route: 048
     Dates: start: 2005, end: 20071221
  12. COROHERSER-R [Concomitant]
     Dosage: 100 MG
     Route: 065

REACTIONS (4)
  - Haematochezia [Not Recovered/Not Resolved]
  - Anaemia [Not Recovered/Not Resolved]
  - Ileal stenosis [Not Recovered/Not Resolved]
  - Intestinal diaphragm disease [Unknown]

NARRATIVE: CASE EVENT DATE: 2007
